FAERS Safety Report 8879925 (Version 1)
Quarter: 2012Q4

REPORT INFORMATION
  Report Type: 
  Country: US (occurrence: US)
  Receive Date: 20121031
  Receipt Date: 20121031
  Transmission Date: 20130627
  Serious: Yes (Other)
  Sender: FDA-Public Use
  Company Number: PHHY2012US096337

PATIENT
  Age: 74 Year
  Sex: Male

DRUGS (1)
  1. ACETYLSALICYLIC ACID [Suspect]
     Indication: HEADACHE
     Dosage: 2 DF, UNK
     Route: 048
     Dates: start: 1982

REACTIONS (6)
  - Urinary tract disorder [Not Recovered/Not Resolved]
  - Colon cancer [Recovered/Resolved]
  - Diabetes mellitus [Not Recovered/Not Resolved]
  - Prostate cancer [Recovered/Resolved]
  - Blood cholesterol increased [Recovering/Resolving]
  - Abdominal discomfort [Recovered/Resolved]
